FAERS Safety Report 9584170 (Version 1)
Quarter: 2013Q4

REPORT INFORMATION
  Report Type: Spontaneous
  Country: US (occurrence: US)
  Receive Date: 20131002
  Receipt Date: 20131002
  Transmission Date: 20140711
  Serious: No
  Sender: FDA-Public Use
  Company Number: US-AMGEN-USASP2013051709

PATIENT
  Age: 61 Year
  Sex: Female
  Weight: 73.47 kg

DRUGS (6)
  1. ENBREL [Suspect]
     Indication: PRODUCT USED FOR UNKNOWN INDICATION
     Dosage: 50 MG, QWK
     Route: 058
  2. MULTIVITAMINS, PLAIN [Concomitant]
     Dosage: UNK
     Route: 048
  3. VITAMIN D                          /00107901/ [Concomitant]
     Dosage: 1000 UNIT, UNK
     Route: 048
  4. FLAXSEED OIL [Concomitant]
     Dosage: UNK
     Route: 048
  5. IBUPROFEN [Concomitant]
     Dosage: 200 MG, UNK
     Route: 048
  6. IRON [Concomitant]
     Dosage: UNK
     Route: 048

REACTIONS (1)
  - Cystitis [Recovered/Resolved]
